FAERS Safety Report 17504381 (Version 1)
Quarter: 2020Q1

REPORT INFORMATION
  Report Type: Spontaneous
  Country: US (occurrence: US)
  Receive Date: 20200305
  Receipt Date: 20200305
  Transmission Date: 20200409
  Serious: Yes (Other)
  Sender: FDA-Public Use
  Company Number: US-ALLERGAN-2009635US

PATIENT
  Sex: Female

DRUGS (1)
  1. REFRESH EYE DROPS (POLYVINYL ALCOHOL (+) POVIDONE) [Suspect]
     Active Substance: POLYVINYL ALCOHOL\POVIDONE
     Indication: DRY EYE
     Dosage: SEVERAL GTTS AS NEEDED
     Route: 047
     Dates: start: 2018, end: 201911

REACTIONS (7)
  - Allergic reaction to excipient [Recovered/Resolved]
  - Eye pruritus [Recovered/Resolved]
  - Eye swelling [Recovered/Resolved]
  - Ocular hyperaemia [Recovered/Resolved]
  - Cataract [Not Recovered/Not Resolved]
  - Lacrimation increased [Recovered/Resolved]
  - Eye irritation [Recovered/Resolved]

NARRATIVE: CASE EVENT DATE: 2018
